FAERS Safety Report 12633677 (Version 1)
Quarter: 2016Q3

REPORT INFORMATION
  Report Type: Spontaneous
  Country: US (occurrence: US)
  Receive Date: 20160809
  Receipt Date: 20160809
  Transmission Date: 20161109
  Serious: No
  Sender: FDA-Public Use
  Company Number: US-WATSON-2016-01744

PATIENT
  Sex: Male
  Weight: 99 kg

DRUGS (2)
  1. TESTOSTERONE CYPIONATE (WATSON LABORATORIES) [Suspect]
     Active Substance: TESTOSTERONE CYPIONATE
     Indication: ARTHRALGIA
     Dosage: 1 ML, 1/WEEK
     Route: 030
     Dates: end: 201507
  2. TESTOSTERONE CYPIONATE (WATSON LABORATORIES) [Suspect]
     Active Substance: TESTOSTERONE CYPIONATE
     Indication: BLOOD TESTOSTERONE DECREASED
     Dosage: 2 ML, 1/TWO WEEKS
     Route: 030
     Dates: end: 20150713

REACTIONS (1)
  - Drug ineffective [Recovered/Resolved]
